FAERS Safety Report 9333775 (Version 1)
Quarter: 2013Q2

REPORT INFORMATION
  Report Type: Spontaneous
  Country: US (occurrence: None)
  Receive Date: 20130604
  Receipt Date: 20130604
  Transmission Date: 20140414
  Serious: Yes (Hospitalization)
  Sender: FDA-Public Use
  Company Number: AUR-AOL-2013-04536

PATIENT
  Age: 60 Year
  Sex: Male

DRUGS (2)
  1. METFORMIN [Suspect]
     Indication: TYPE 2 DIABETES MELLITUS
  2. VICODIN [Concomitant]

REACTIONS (11)
  - Metabolic acidosis [None]
  - Renal failure acute [None]
  - Blindness [None]
  - Lethargy [None]
  - Vomiting [None]
  - Diarrhoea [None]
  - Tachycardia [None]
  - Tachypnoea [None]
  - Haemodialysis [None]
  - Dehydration [None]
  - Toxicity to various agents [None]
